FAERS Safety Report 20559053 (Version 1)
Quarter: 2022Q1

REPORT INFORMATION
  Report Type: Spontaneous
  Country: US (occurrence: None)
  Receive Date: 20220304
  Receipt Date: 20220304
  Transmission Date: 20220423
  Serious: No
  Sender: FDA-Public Use
  Company Number: None

PATIENT
  Age: 6 Year
  Sex: Male

DRUGS (1)
  1. PULMOZYME [Suspect]
     Active Substance: DORNASE ALFA
     Indication: Bronchiectasis
     Dosage: 1MG ONCE DAILY INHALATION?
     Route: 055
     Dates: start: 202009

REACTIONS (1)
  - Respiratory tract infection viral [None]

NARRATIVE: CASE EVENT DATE: 20220228
